FAERS Safety Report 7365762-2 (Version None)
Quarter: 2011Q1

REPORT INFORMATION
  Report Type: 
  Country: None (occurrence: None)
  Receive Date: 20110225
  Receipt Date: 20101029
  Transmission Date: 20110831
  Serious: No
  Sender: FDA-Public Use
  Company Number: 317478

PATIENT
  Age: 55 Year
  Sex: Female

DRUGS (3)
  1. LANTUS [Concomitant]
  2. VICTOZA [Suspect]
     Indication: TYPE 2 DIABETES MELLITUS
     Dosage: 1.2 MG, BID, SUBCUTANEOUS
     Route: 058
     Dates: start: 20101001
  3. PLAVIX [Concomitant]

REACTIONS (1)
  - BLOOD GLUCOSE INCREASED [None]
